FAERS Safety Report 6398816-8 (Version None)
Quarter: 2009Q4

REPORT INFORMATION
  Report Type: 
  Country: None (occurrence: None)
  Receive Date: 20091013
  Receipt Date: 20091009
  Transmission Date: 20100525
  Serious: Yes (Death, Hospitalization)
  Sender: FDA-Public Use
  Company Number: US-ABBOTT-09P-163-0601678-00

PATIENT
  Sex: Female
  Weight: 58.112 kg

DRUGS (2)
  1. HUMIRA [Suspect]
     Indication: RHEUMATOID ARTHRITIS
     Dates: start: 20071120
  2. HUMIRA [Suspect]
     Dates: end: 20080218

REACTIONS (6)
  - DECREASED APPETITE [None]
  - HEADACHE [None]
  - HYPERTENSION [None]
  - PRURITUS [None]
  - SUDDEN CARDIAC DEATH [None]
  - WEIGHT DECREASED [None]
